FAERS Safety Report 7084924-5 (Version None)
Quarter: 2010Q4

REPORT INFORMATION
  Report Type: 
  Country: None (occurrence: None)
  Receive Date: 20101105
  Receipt Date: 20100910
  Transmission Date: 20110411
  Serious: Yes (Other)
  Sender: FDA-Public Use
  Company Number: US-BAYER-200941474NA

PATIENT
  Age: 21 Year
  Sex: Female
  Weight: 77 kg

DRUGS (15)
  1. YAZ [Suspect]
     Indication: CONTRACEPTION
     Route: 048
     Dates: start: 20060901, end: 20090101
  2. MOTRIN [Concomitant]
     Indication: HEADACHE
     Route: 048
     Dates: start: 20090101, end: 20090101
  3. ADVIL [Concomitant]
     Indication: HEADACHE
     Route: 048
     Dates: start: 20090101, end: 20090101
  4. NAPROSYN [Concomitant]
     Route: 065
  5. ALEVE (CAPLET) [Concomitant]
     Route: 065
  6. DIAMOX SRC [Concomitant]
     Dosage: TOTAL DAILY DOSE: 1000 ML  UNIT DOSE: 500 ML
     Route: 065
     Dates: start: 20090101
  7. DARVOCET-N 100 [Concomitant]
     Route: 065
     Dates: start: 20090101
  8. ACETAZOLAMIDE [Concomitant]
     Route: 048
     Dates: start: 20090101, end: 20090101
  9. COLACE [Concomitant]
     Route: 048
     Dates: start: 20090101, end: 20090101
  10. MIRALAX [Concomitant]
     Route: 065
     Dates: start: 20090101, end: 20090101
  11. POTASSIUM CHLORIDE [Concomitant]
     Route: 042
     Dates: start: 20090101, end: 20090101
  12. MORPHINE SULFATE [Concomitant]
     Route: 042
     Dates: start: 20090101, end: 20090101
  13. REGLAN [Concomitant]
     Route: 042
     Dates: start: 20090101, end: 20090101
  14. ZOFRAN [Concomitant]
     Route: 065
     Dates: start: 20090101, end: 20090101
  15. ACETAMINOPHEN AND OXYCODONE HCL [Concomitant]
     Route: 048
     Dates: start: 20090101, end: 20090101

REACTIONS (6)
  - DIZZINESS [None]
  - HEADACHE [None]
  - INSOMNIA [None]
  - INTRACRANIAL VENOUS SINUS THROMBOSIS [None]
  - NAUSEA [None]
  - VITH NERVE PARALYSIS [None]
